FAERS Safety Report 19954377 (Version 1)
Quarter: 2021Q4

REPORT INFORMATION
  Report Type: Spontaneous
  Country: US (occurrence: US)
  Receive Date: 20211011
  Receipt Date: 20211011
  Transmission Date: 20220303
  Serious: Yes (Other)
  Sender: FDA-Public Use
  Company Number: None

PATIENT
  Age: 71 Year
  Sex: Female
  Weight: 72.57 kg

DRUGS (7)
  1. AMLODIPINE BESYLATE [Suspect]
     Active Substance: AMLODIPINE BESYLATE
     Indication: Hypertension
     Dosage: ?          QUANTITY:100 DF DOSAGE FORM;
     Route: 048
     Dates: start: 20191102, end: 20200420
  2. VITAMIN D3 [Concomitant]
     Active Substance: CHOLECALCIFEROL
  3. VITAMIN C [Concomitant]
     Active Substance: ASCORBIC ACID
  4. VITAMINS [Concomitant]
     Active Substance: VITAMINS
  5. Vit A [Concomitant]
  6. VITAMIN E [Concomitant]
     Active Substance: .ALPHA.-TOCOPHEROL
  7. VITAMIN K [Concomitant]
     Active Substance: PHYTONADIONE

REACTIONS (5)
  - Palpitations [None]
  - Heart rate increased [None]
  - Rash [None]
  - Cardiac disorder [None]
  - Dizziness [None]

NARRATIVE: CASE EVENT DATE: 20200501
